FAERS Safety Report 6209544-3 (Version None)
Quarter: 2009Q2

REPORT INFORMATION
  Report Type: 
  Country: None (occurrence: None)
  Receive Date: 20090601
  Receipt Date: 20090520
  Transmission Date: 20091009
  Serious: Yes (Death, Other)
  Sender: FDA-Public Use
  Company Number: US-BAYER-200922027NA

PATIENT
  Sex: Female

DRUGS (1)
  1. TRASYLOL [Suspect]
     Indication: CARDIAC OPERATION
     Dates: start: 20020516

REACTIONS (9)
  - ANHEDONIA [None]
  - ANXIETY [None]
  - DEATH [None]
  - DEPRESSION [None]
  - FEAR [None]
  - INJURY [None]
  - PAIN [None]
  - RENAL FAILURE [None]
  - UNEVALUABLE EVENT [None]
